FAERS Safety Report 10109768 (Version 2)
Quarter: 2014Q2

REPORT INFORMATION
  Report Type: Spontaneous
  Country: FR (occurrence: None)
  Receive Date: 20140423
  Receipt Date: 20140502
  Transmission Date: 20141212
  Serious: Yes (Hospitalization)
  Sender: FDA-Public Use
  Company Number: 7283689

PATIENT
  Age: 65 Year
  Sex: Male

DRUGS (3)
  1. LEVOTHYROX (LEVOTHYROXINE SODIUM) (LEVOTHYROXINE SODIUM) [Suspect]
     Indication: PRODUCT USED FOR UNKNOWN INDICATION
  2. BIOCALYPTOL-PHOLCODINE (BIOCALYPTOL-PHOLCODINE) (GUAIACOL, PHENOL, CINEOLE, PHOLCODINE, SODIUM CAMSYLATE) [Suspect]
     Indication: PRODUCT USED FOR UNKNOWN INDICATION
  3. PHOLCODINE (PHOLCODINE) (PHOLCODINE) [Suspect]
     Indication: PRODUCT USED FOR UNKNOWN INDICATION

REACTIONS (1)
  - Angioedema [None]
